FAERS Safety Report 5886489-X (Version None)
Quarter: 2008Q3

REPORT INFORMATION
  Report Type: 
  Country: None (occurrence: None)
  Receive Date: 20080917
  Receipt Date: 20080911
  Transmission Date: 20090109
  Serious: Yes (Life-Threatening, Hospitalization)
  Sender: FDA-Public Use
  Company Number: ES-MERCK-0809ESP00013

PATIENT
  Age: 67 Year
  Sex: Female

DRUGS (4)
  1. ZETIA [Suspect]
     Route: 048
  2. HYDROCORTISONE [Concomitant]
     Route: 048
  3. LEVOTHYROXINE SODIUM [Concomitant]
     Indication: HYPOTHYROIDISM
     Route: 048
  4. ACENOCOUMAROL [Suspect]
     Indication: ATRIAL FIBRILLATION
     Route: 048

REACTIONS (2)
  - CEREBRAL HAEMATOMA [None]
  - DRUG INTERACTION [None]
